FAERS Safety Report 13674716 (Version 1)
Quarter: 2017Q2

REPORT INFORMATION
  Report Type: Spontaneous
  Country: US (occurrence: US)
  Receive Date: 20170621
  Receipt Date: 20170621
  Transmission Date: 20170830
  Serious: Yes (Other)
  Sender: FDA-Public Use
  Company Number: US-LPDUSPRD-20170831

PATIENT
  Age: 57 Year
  Sex: Male

DRUGS (1)
  1. VASOPRESSIN INJECTION, USP (0410-10) [Suspect]
     Active Substance: VASOPRESSIN
     Dosage: DOSE NOT PROVIDED
     Route: 042

REACTIONS (1)
  - Diabetes insipidus [Unknown]
